FAERS Safety Report 6787092-X (Version None)
Quarter: 2010Q2

REPORT INFORMATION
  Report Type: 
  Country: None (occurrence: None)
  Receive Date: 20100623
  Receipt Date: 20100618
  Transmission Date: 20101027
  Serious: Yes (Death, Other)
  Sender: FDA-Public Use
  Company Number: PHHY2010JP40328

PATIENT
  Age: 71 Year
  Sex: Male

DRUGS (5)
  1. CYCLOSPORINE [Suspect]
     Indication: LARGE GRANULAR LYMPHOCYTOSIS
     Dosage: 200 MG. DAILY
     Route: 048
     Dates: start: 20081021
  2. CYCLOSPORINE [Suspect]
     Indication: INTERSTITIAL LUNG DISEASE
     Dosage: 150 MG, DAILY
     Route: 048
     Dates: start: 20080101
  3. CYCLOSPORINE [Suspect]
     Dosage: 100 MG, DAILY
     Route: 048
     Dates: start: 20081101
  4. CYCLOSPORINE [Suspect]
     Dosage: 50 MG, DAILY
     Route: 048
     Dates: start: 20081201
  5. CYCLOSPORINE [Suspect]
     Dosage: 25 MG, DAILY
     Route: 048
     Dates: start: 20081201, end: 20081201

REACTIONS (8)
  - ASPERGILLOSIS [None]
  - DECREASED APPETITE [None]
  - DEVICE RELATED INFECTION [None]
  - LIVER DISORDER [None]
  - MULTI-ORGAN FAILURE [None]
  - PANCREATITIS [None]
  - PNEUMOCYSTIS JIROVECI PNEUMONIA [None]
  - RENAL IMPAIRMENT [None]
